FAERS Safety Report 10585958 (Version 2)
Quarter: 2014Q4

REPORT INFORMATION
  Report Type: Spontaneous
  Country: US (occurrence: US)
  Receive Date: 20141114
  Receipt Date: 20141204
  Transmission Date: 20150529
  Serious: Yes (Other)
  Sender: FDA-Public Use
  Company Number: US-GLAXOSMITHKLINE-US2014GSK020979

PATIENT
  Age: 80 Year
  Sex: Male

DRUGS (5)
  1. CHOLESTEROL MEDICATION (UNKNOWN) [Concomitant]
  2. ADVAIR DISKUS [Suspect]
     Active Substance: FLUTICASONE PROPIONATE\SALMETEROL XINAFOATE
     Dosage: 1 PUFF(S), BID
     Route: 055
     Dates: start: 2004
  3. BLOOD PRESSURE MEDICATION [Concomitant]
     Active Substance: UNSPECIFIED INGREDIENT
  4. PROSTATE MEDICATION [Concomitant]
  5. UNSPECIFIED INHALER [Suspect]
     Active Substance: UNSPECIFIED INGREDIENT
     Indication: PRODUCT USED FOR UNKNOWN INDICATION
     Dosage: UNK, BID
     Route: 055

REACTIONS (5)
  - Dyspnoea [Recovering/Resolving]
  - Sleep apnoea syndrome [Unknown]
  - Total lung capacity decreased [Recovering/Resolving]
  - Product quality issue [Unknown]
  - Hypoxia [Unknown]

NARRATIVE: CASE EVENT DATE: 201407
